FAERS Safety Report 6588324-3 (Version None)
Quarter: 2010Q1

REPORT INFORMATION
  Report Type: 
  Country: None (occurrence: None)
  Receive Date: 20100217
  Receipt Date: 20100217
  Transmission Date: 20100710
  Serious: Yes (Hospitalization)
  Sender: FDA-Public Use
  Company Number: None

PATIENT
  Age: 53 Year
  Sex: Male
  Weight: 133 kg

DRUGS (2)
  1. TEMSIROLIMUS [Suspect]
     Indication: RENAL CELL CARCINOMA
     Dosage: 25 MG QWEEK IV
     Route: 042
     Dates: start: 20091217, end: 20091224
  2. VANCOMYCIN [Suspect]
     Indication: INFECTION
     Dosage: IV
     Route: 042
     Dates: start: 20091221, end: 20100108

REACTIONS (12)
  - ANAEMIA OF CHRONIC DISEASE [None]
  - CHILLS [None]
  - HAEMOTHORAX [None]
  - JAUNDICE CHOLESTATIC [None]
  - PLEURAL EFFUSION [None]
  - PNEUMONIA [None]
  - PYREXIA [None]
  - RENAL FAILURE ACUTE [None]
  - RENAL INJURY [None]
  - RENAL TUBULAR NECROSIS [None]
  - RESPIRATORY DISTRESS [None]
  - THROMBOCYTOPENIA [None]
